FAERS Safety Report 22642710 (Version 1)
Quarter: 2023Q2

REPORT INFORMATION
  Report Type: Spontaneous
  Country: US (occurrence: US)
  Receive Date: 20230627
  Receipt Date: 20230627
  Transmission Date: 20230722
  Serious: No
  Sender: FDA-Public Use
  Company Number: US-AMGEN-USASP2023108584

PATIENT
  Age: 14 Year
  Sex: Female

DRUGS (4)
  1. NPLATE [Suspect]
     Active Substance: ROMIPLOSTIM
     Indication: Immune thrombocytopenia
     Dosage: 10 MICROGRAM/KILOGRAM
     Route: 058
     Dates: start: 20220928
  2. VINBLASTINE [Concomitant]
     Active Substance: VINBLASTINE
     Dosage: UNK, Q2WK
     Route: 042
  3. VINBLASTINE [Concomitant]
     Active Substance: VINBLASTINE
     Dosage: UNK, Q2WK
     Route: 042
     Dates: start: 20230530
  4. TAVALISSE [Concomitant]
     Active Substance: FOSTAMATINIB
     Dosage: UNK, BID

REACTIONS (1)
  - Therapy non-responder [Unknown]
